FAERS Safety Report 7086873-5 (Version None)
Quarter: 2010Q4

REPORT INFORMATION
  Report Type: 
  Country: None (occurrence: None)
  Receive Date: 20101105
  Receipt Date: 20101022
  Transmission Date: 20110411
  Serious: Yes (Death, Hospitalization)
  Sender: FDA-Public Use
  Company Number: PHEH2007US16435

PATIENT
  Sex: Female
  Weight: 81.179 kg

DRUGS (3)
  1. EXJADE [Suspect]
     Indication: MYELODYSPLASTIC SYNDROME
     Dosage: 500 MG, 3 TABS DAILY
     Route: 048
     Dates: start: 20060427
  2. EXJADE [Suspect]
     Indication: HAEMOCHROMATOSIS
  3. TRICYCLIC ANTIDEPRESSANTS [Concomitant]
     Dosage: UNK

REACTIONS (9)
  - ANAEMIA [None]
  - CEREBRAL HAEMORRHAGE [None]
  - CONVULSION [None]
  - COUGH [None]
  - EPISTAXIS [None]
  - PNEUMONIA ASPIRATION [None]
  - RESPIRATORY FAILURE [None]
  - SEPSIS [None]
  - THROMBOCYTOPENIA [None]
